FAERS Safety Report 19807103 (Version 1)
Quarter: 2021Q3

REPORT INFORMATION
  Report Type: Spontaneous
  Country: US (occurrence: US)
  Receive Date: 20210909
  Receipt Date: 20210909
  Transmission Date: 20211014
  Serious: No
  Sender: FDA-Public Use
  Company Number: US-SA-2021SA295830

PATIENT
  Sex: Female

DRUGS (1)
  1. DUPIXENT [Suspect]
     Active Substance: DUPILUMAB
     Indication: DERMATITIS ATOPIC
     Route: 058
     Dates: start: 202106

REACTIONS (6)
  - Condition aggravated [Unknown]
  - Paraesthesia [Unknown]
  - Pustule [Unknown]
  - Sleep disorder [Unknown]
  - Rash [Unknown]
  - Pain [Unknown]
